FAERS Safety Report 24287521 (Version 1)
Quarter: 2024Q3

REPORT INFORMATION
  Report Type: Report from Study
  Country: JP (occurrence: JP)
  Receive Date: 20240905
  Receipt Date: 20240905
  Transmission Date: 20241016
  Serious: Yes (Hospitalization)
  Sender: SHIONOGI
  Company Number: JP-shionogi-202406775_FTR_P_1

PATIENT
  Age: 32 Year
  Sex: Male
  Weight: 67 kg

DRUGS (9)
  1. FETROJA [Suspect]
     Active Substance: CEFIDEROCOL SULFATE TOSYLATE
     Indication: Meningitis
     Dosage: 2 G, PRN6
     Route: 041
     Dates: start: 20240404, end: 20240607
  2. AMBROXOL HYDROCHLORIDE [Concomitant]
     Active Substance: AMBROXOL HYDROCHLORIDE
     Indication: Prophylaxis
     Dosage: UNK
     Route: 048
     Dates: start: 20240422
  3. LEVETIRACETAM [Concomitant]
     Active Substance: LEVETIRACETAM
     Indication: Prophylaxis
     Dosage: UNK
     Route: 048
  4. FUROSEMIDE [Concomitant]
     Active Substance: FUROSEMIDE
     Indication: Prophylaxis
     Dosage: UNK
     Route: 048
     Dates: start: 20240504
  5. DIETARY SUPPLEMENT\PROBIOTICS [Concomitant]
     Active Substance: DIETARY SUPPLEMENT\PROBIOTICS NOS
     Indication: Prophylaxis
     Dosage: UNK
     Route: 048
     Dates: start: 20240411
  6. MIYA-BM [Concomitant]
     Active Substance: CLOSTRIDIUM BUTYRICUM SPORES STRAIN M-55
     Indication: Prophylaxis
     Dosage: UNK
     Route: 048
  7. FOSFLUCONAZOLE [Concomitant]
     Active Substance: FOSFLUCONAZOLE
     Indication: Systemic candida
     Dosage: UNK
     Route: 065
     Dates: start: 20240430
  8. VANCOMYCIN [Concomitant]
     Active Substance: VANCOMYCIN
     Indication: Meningitis
     Dosage: UNK
     Route: 065
     Dates: start: 20240505, end: 20240614
  9. AMINO ACIDS\DEXTROSE\ELECTROLYTES NOS\MINERALS\VITAMINS [Concomitant]
     Active Substance: AMINO ACIDS\DEXTROSE\ELECTROLYTES NOS\MINERALS\VITAMINS
     Indication: Prophylaxis
     Dosage: UNK
     Route: 065
     Dates: start: 20240331, end: 20240505

REACTIONS (3)
  - Systemic candida [Recovering/Resolving]
  - Meningitis [Recovered/Resolved]
  - Pneumonia aspiration [Not Recovered/Not Resolved]

NARRATIVE: CASE EVENT DATE: 20240424
